FAERS Safety Report 8170790-3 (Version None)
Quarter: 2012Q1

REPORT INFORMATION
  Report Type: 
  Country: None (occurrence: None)
  Receive Date: 20120228
  Receipt Date: 20120224
  Transmission Date: 20120608
  Serious: No
  Sender: FDA-Public Use
  Company Number: US-PFIZER INC-2011062563

PATIENT
  Sex: Female
  Weight: 61 kg

DRUGS (3)
  1. THYROID TAB [Concomitant]
     Indication: HYPOTHYROIDISM
     Dosage: 90 MG, UNK
  2. CORTISONE [Concomitant]
     Indication: ADRENAL INSUFFICIENCY
     Dosage: 0.5 MG, UNK
  3. GENOTROPIN [Suspect]
     Indication: HYPOPITUITARISM
     Dosage: 0.8 MG, 1X/DAY
     Dates: start: 20040101

REACTIONS (2)
  - JAW DISORDER [None]
  - HEADACHE [None]
